FAERS Safety Report 9154282 (Version 1)
Quarter: 2013Q1

REPORT INFORMATION
  Report Type: Spontaneous
  Country: US (occurrence: US)
  Receive Date: 20130311
  Receipt Date: 20130311
  Transmission Date: 20140127
  Serious: No
  Sender: FDA-Public Use
  Company Number: US-B.I. PHARMACEUTICALS,INC./RIDGEFIELD-2013-BI-05533BP

PATIENT
  Age: 74 Year
  Sex: Female

DRUGS (1)
  1. MIRAPEX [Suspect]
     Indication: RESTLESS LEGS SYNDROME
     Dosage: 3.75 MG
     Route: 048
     Dates: start: 20130223

REACTIONS (2)
  - Hypersomnia [Recovered/Resolved]
  - Drug prescribing error [Unknown]
